FAERS Safety Report 5546366-0 (Version None)
Quarter: 2007Q4

REPORT INFORMATION
  Report Type: 
  Country: None (occurrence: None)
  Receive Date: 20071206
  Receipt Date: 20071206
  Transmission Date: 20080405
  Serious: Yes (Hospitalization)
  Sender: FDA-Public Use
  Company Number: None

PATIENT
  Age: 6 Year
  Sex: Female
  Weight: 20.4119 kg

DRUGS (2)
  1. CHILDREN'S IBUPROFEN COLD 100 MG IBUPROFEN/EQUATE [Suspect]
     Indication: NASOPHARYNGITIS
     Dosage: 2 TSP EVERY 6 HOURS PO
     Route: 048
     Dates: start: 20071201, end: 20071201
  2. CHILDREN'S IBUPROFEN COLD 15 MG PSEUDOEPHEDRINE EQUATE [Suspect]

REACTIONS (2)
  - MUSCLE SPASMS [None]
  - MUSCLE TWITCHING [None]
